FAERS Safety Report 6215970-9 (Version None)
Quarter: 2009Q2

REPORT INFORMATION
  Report Type: 
  Country: None (occurrence: None)
  Receive Date: 20090603
  Receipt Date: 20090603
  Transmission Date: 20091009
  Serious: Yes (Life-Threatening)
  Sender: FDA-Public Use
  Company Number: None

PATIENT
  Age: 69 Year
  Sex: Male
  Weight: 68.0396 kg

DRUGS (1)
  1. THALOMID [Suspect]
     Indication: NEOPLASM MALIGNANT
     Dosage: 50 MG
     Dates: start: 20070707, end: 20080909

REACTIONS (5)
  - CONSTIPATION [None]
  - DRY MOUTH [None]
  - HYPOAESTHESIA [None]
  - MUSCLE SPASMS [None]
  - THROMBOSIS [None]
